FAERS Safety Report 7232154-6 (Version None)
Quarter: 2011Q1

REPORT INFORMATION
  Report Type: 
  Country: None (occurrence: None)
  Receive Date: 20110119
  Receipt Date: 20110114
  Transmission Date: 20110831
  Serious: Yes (Hospitalization)
  Sender: FDA-Public Use
  Company Number: BE-BIOGENIDEC-2011BI001783

PATIENT
  Age: 54 Year
  Sex: Male

DRUGS (4)
  1. AVONEX [Suspect]
     Indication: MULTIPLE SCLEROSIS
     Route: 030
     Dates: start: 20020101
  2. ZALDIAR [Concomitant]
     Route: 048
  3. XANAX [Concomitant]
  4. DEPAKENE [Concomitant]
     Route: 048

REACTIONS (3)
  - INFARCTION [None]
  - CHEST PAIN [None]
  - RESPIRATORY ARREST [None]
